FAERS Safety Report 8106760-0 (Version None)
Quarter: 2012Q1

REPORT INFORMATION
  Report Type: 
  Country: None (occurrence: None)
  Receive Date: 20120202
  Receipt Date: 20120131
  Transmission Date: 20120608
  Serious: Yes (Death)
  Sender: FDA-Public Use
  Company Number: FR-JNJFOC-20120110668

PATIENT
  Sex: Female
  Weight: 57 kg

DRUGS (5)
  1. VELCADE [Suspect]
     Indication: MULTIPLE MYELOMA
     Route: 042
     Dates: start: 20111230
  2. CORDARONE [Concomitant]
     Indication: ARRHYTHMIA
     Route: 065
     Dates: start: 20111108, end: 20120120
  3. DEXAMETHASONE [Suspect]
     Indication: PRODUCT USED FOR UNKNOWN INDICATION
     Route: 065
     Dates: start: 20111231
  4. DURAGESIC-100 [Suspect]
     Indication: PAIN
     Route: 065
     Dates: start: 20120118, end: 20120119
  5. RABEPRAZOLE SODIUM [Concomitant]
     Indication: GASTROINTESTINAL DISORDER THERAPY
     Route: 065
     Dates: start: 20111201, end: 20120120

REACTIONS (1)
  - CLOSTRIDIUM DIFFICILE COLITIS [None]
